FAERS Safety Report 11793649 (Version 1)
Quarter: 2015Q4

REPORT INFORMATION
  Report Type: Spontaneous
  Country: US (occurrence: US)
  Receive Date: 20151202
  Receipt Date: 20151202
  Transmission Date: 20160305
  Serious: No
  Sender: FDA-Public Use
  Company Number: US-BIOGENIDEC-2015BI157661

PATIENT

DRUGS (1)
  1. TECFIDERA [Suspect]
     Active Substance: DIMETHYL FUMARATE
     Indication: MULTIPLE SCLEROSIS

REACTIONS (8)
  - Peripheral coldness [Unknown]
  - Mydriasis [Unknown]
  - Blindness [Unknown]
  - Balance disorder [Unknown]
  - Pain in extremity [Unknown]
  - Burning sensation [Unknown]
  - Cognitive disorder [Unknown]
  - Flushing [Unknown]
